FAERS Safety Report 8000347-6 (Version None)
Quarter: 2011Q4

REPORT INFORMATION
  Report Type: 
  Country: None (occurrence: None)
  Receive Date: 20111222
  Receipt Date: 20111213
  Transmission Date: 20120403
  Serious: Yes (Hospitalization, Other)
  Sender: FDA-Public Use
  Company Number: US-BAYER-2011-114320

PATIENT
  Age: 17 Year
  Sex: Female
  Weight: 100 kg

DRUGS (7)
  1. TOPAMAX [Concomitant]
     Indication: MIGRAINE
     Dosage: 25MG, 3 TABS, TWICE DAILY
     Route: 048
     Dates: start: 20070101
  2. ZYRTEC [Concomitant]
     Dosage: 10 MG, HS
     Route: 048
     Dates: start: 20060401, end: 20080401
  3. PROMETHAZINE [Concomitant]
     Dosage: 12.5MG EVERY 6 HOURS AS NEEDED
     Dates: start: 20070607
  4. CONCERTA [Concomitant]
     Indication: ATTENTION DEFICIT/HYPERACTIVITY DISORDER
     Dosage: 54 MG, DAILY
     Route: 048
     Dates: start: 20040101
  5. YASMIN [Suspect]
     Indication: MENORRHAGIA
     Dosage: UNK
     Dates: start: 20090301, end: 20090901
  6. ALBUTEROL [Concomitant]
     Dosage: UNK UNK, PRN
     Route: 055
     Dates: start: 20070607
  7. YAZ [Suspect]
     Indication: MENORRHAGIA
     Dosage: UNK
     Dates: start: 20060701, end: 20070801

REACTIONS (6)
  - CHOLECYSTITIS CHRONIC [None]
  - EMOTIONAL DISTRESS [None]
  - GALLBLADDER DISORDER [None]
  - INJURY [None]
  - DEEP VEIN THROMBOSIS [None]
  - PAIN [None]
